FAERS Safety Report 6400788-4 (Version None)
Quarter: 2009Q4

REPORT INFORMATION
  Report Type: 
  Country: None (occurrence: None)
  Receive Date: 20091008
  Receipt Date: 20091002
  Transmission Date: 20100525
  Serious: Yes (Other)
  Sender: FDA-Public Use
  Company Number: 2009SP028248

PATIENT
  Age: 50 Year
  Sex: Male

DRUGS (2)
  1. RIBAVIRIN [Suspect]
     Indication: HEPATITIS C
     Dosage: ; PO
     Route: 048
  2. PEG INTERFERON (INTERFERONS) [Suspect]
     Indication: HEPATITIS C

REACTIONS (3)
  - BASEDOW'S DISEASE [None]
  - HYPOTHYROIDISM [None]
  - PLATELET COUNT DECREASED [None]
